FAERS Safety Report 5391052-3 (Version None)
Quarter: 2007Q3

REPORT INFORMATION
  Report Type: 
  Country: None (occurrence: None)
  Receive Date: 20070717
  Receipt Date: 20070709
  Transmission Date: 20080115
  Serious: Yes (Other)
  Sender: FDA-Public Use
  Company Number: 163-20785-07070486

PATIENT

DRUGS (4)
  1. THALOMID [Suspect]
     Indication: MALIGNANT GLIOMA
     Dosage: SEE IMAGE
     Route: 048
  2. ETOPOSIDE [Suspect]
     Indication: MALIGNANT GLIOMA
     Dosage: 35 MG/M2, DAILY FOR 21DAYS
     Route: 048
  3. CYCLOPHOSPHAMIDE [Concomitant]
     Indication: MALIGNANT GLIOMA
     Dosage: SEE IMAGE
     Route: 048
  4. CELECOXIB [Suspect]
     Indication: MALIGNANT GLIOMA
     Dosage: SEE IMAGE
     Route: 048

REACTIONS (19)
  - ANAEMIA [None]
  - COLITIS [None]
  - CONSTIPATION [None]
  - COORDINATION ABNORMAL [None]
  - DIZZINESS [None]
  - DYSPHAGIA [None]
  - FATIGUE [None]
  - HEPATOTOXICITY [None]
  - HYPERGLYCAEMIA [None]
  - HYPOXIA [None]
  - INFECTION [None]
  - LEUKOPENIA [None]
  - LYMPHOPENIA [None]
  - NEUTROPENIA [None]
  - RASH [None]
  - SOMNOLENCE [None]
  - THROMBOCYTOPENIA [None]
  - THROMBOSIS [None]
  - TREMOR [None]
